FAERS Safety Report 9447478 (Version 1)
Quarter: 2013Q3

REPORT INFORMATION
  Report Type: Spontaneous
  Country: US (occurrence: US)
  Receive Date: 20130808
  Receipt Date: 20130808
  Transmission Date: 20140515
  Serious: No
  Sender: FDA-Public Use
  Company Number: US-PFIZER INC-2013226675

PATIENT
  Age: 68 Year
  Sex: Male
  Weight: 83.9 kg

DRUGS (1)
  1. TOVIAZ [Suspect]
     Indication: HYPERTONIC BLADDER
     Dosage: 4 MG, 1X/DAY
     Route: 048
     Dates: start: 20130801, end: 20130803

REACTIONS (3)
  - Vision blurred [Unknown]
  - Diplopia [Unknown]
  - Pain [Unknown]
